FAERS Safety Report 16780054 (Version 1)
Quarter: 2019Q3

REPORT INFORMATION
  Report Type: Spontaneous
  Country: US (occurrence: US)
  Receive Date: 20190717
  Receipt Date: 20190717
  Transmission Date: 20191005
  Serious: No
  Sender: FDA-Public Use
  Company Number: None

PATIENT
  Sex: Female

DRUGS (1)
  1. CAPECITABINE 500MG [Suspect]
     Active Substance: CAPECITABINE
     Indication: BREAST CANCER
     Route: 048

REACTIONS (14)
  - Abdominal pain [None]
  - Hypersomnia [None]
  - Dizziness postural [None]
  - Dyspnoea exertional [None]
  - Disorganised speech [None]
  - Neuropathy peripheral [None]
  - Skin exfoliation [None]
  - Stomatitis [None]
  - Balance disorder [None]
  - Bone pain [None]
  - Constipation [None]
  - Fatigue [None]
  - Asthenia [None]
  - Diarrhoea [None]
